FAERS Safety Report 9894304 (Version 1)
Quarter: 2014Q1

REPORT INFORMATION
  Report Type: Report from Study
  Country: GB (occurrence: GB)
  Receive Date: 20140213
  Receipt Date: 20140213
  Transmission Date: 20141002
  Serious: Yes (Hospitalization)
  Sender: FDA-Public Use
  Company Number: GB-GLAXOSMITHKLINE-Z0022090A

PATIENT
  Age: 72 Year
  Sex: Male
  Weight: 95.8 kg

DRUGS (3)
  1. GSK2256098 [Suspect]
     Indication: NEOPLASM
     Route: 048
     Dates: start: 20140110
  2. TRAMETINIB [Suspect]
     Indication: NEOPLASM
     Route: 048
     Dates: start: 20140110
  3. LOPERAMIDE [Concomitant]
     Indication: DIARRHOEA
     Dosage: 4MG AS REQUIRED
     Route: 048
     Dates: start: 20140111

REACTIONS (1)
  - Diarrhoea [Recovering/Resolving]
